FAERS Safety Report 4585411-6 (Version None)
Quarter: 2005Q1

REPORT INFORMATION
  Report Type: 
  Country: None (occurrence: None)
  Receive Date: 20050217
  Receipt Date: 20050207
  Transmission Date: 20050727
  Serious: Yes (Other)
  Sender: FDA-Public Use
  Company Number: ZA-ABBOTT-05P-143-0290026-00

PATIENT
  Age: 65 Year
  Sex: Female
  Weight: 110 kg

DRUGS (4)
  1. REDUCTIL 15MG [Suspect]
     Indication: OBESITY
     Route: 048
     Dates: start: 20041001, end: 20041101
  2. ATORVASTATIN [Suspect]
     Indication: HYPERCHOLESTEROLAEMIA
     Route: 048
     Dates: start: 20041001
  3. OXYBUTYNIN [Concomitant]
     Indication: HYPERHIDROSIS
     Route: 048
     Dates: start: 20040201
  4. RAMIPRIL [Concomitant]
     Indication: ESSENTIAL HYPERTENSION
     Route: 048
     Dates: start: 20030801

REACTIONS (3)
  - MEMORY IMPAIRMENT [None]
  - SIGHT DISABILITY [None]
  - VISUAL ACUITY REDUCED [None]
